FAERS Safety Report 9832608 (Version 3)
Quarter: 2014Q1

REPORT INFORMATION
  Report Type: Spontaneous
  Country: IT (occurrence: IT)
  Receive Date: 20140121
  Receipt Date: 20140326
  Transmission Date: 20141002
  Serious: Yes (Death)
  Sender: FDA-Public Use
  Company Number: IT-ABBVIE-14P-083-1190488-00

PATIENT
  Age: 71 Year
  Sex: Male

DRUGS (2)
  1. HUMIRA [Suspect]
     Indication: PSORIATIC ARTHROPATHY
     Route: 058
     Dates: start: 20091101, end: 20130917
  2. METHOTREXATE SODIUM [Concomitant]
     Indication: PSORIATIC ARTHROPATHY
     Route: 058
     Dates: start: 20070101, end: 20131231

REACTIONS (4)
  - Lung neoplasm [Fatal]
  - Mycobacterium tuberculosis complex test positive [Unknown]
  - Cough [Unknown]
  - General physical health deterioration [Unknown]
